FAERS Safety Report 9656678 (Version 1)
Quarter: 2013Q4

REPORT INFORMATION
  Report Type: Spontaneous
  Country: US (occurrence: None)
  Receive Date: 20131029
  Receipt Date: 20131029
  Transmission Date: 20140711
  Serious: No
  Sender: FDA-Public Use
  Company Number: None

PATIENT
  Sex: 0

DRUGS (1)
  1. ADDERALL [Suspect]

REACTIONS (4)
  - Muscle rigidity [None]
  - Vision blurred [None]
  - Palpitations [None]
  - Oropharyngeal pain [None]
